FAERS Safety Report 16164850 (Version 1)
Quarter: 2019Q2

REPORT INFORMATION
  Report Type: Spontaneous
  Country: BE (occurrence: BE)
  Receive Date: 20190405
  Receipt Date: 20190405
  Transmission Date: 20190711
  Serious: Yes (Hospitalization, Other)
  Sender: FDA-Public Use
  Company Number: BE-BAYER-2019-064130

PATIENT
  Age: 66 Year
  Sex: Male

DRUGS (3)
  1. ACETYLSALICYLIC ACID (CARDIO) [Suspect]
     Active Substance: ASPIRIN
     Indication: BLOOD DISORDER PROPHYLAXIS
  2. ABCIXIMAB [Interacting]
     Active Substance: ABCIXIMAB
     Indication: PERCUTANEOUS CORONARY INTERVENTION
  3. PRASUGREL. [Interacting]
     Active Substance: PRASUGREL

REACTIONS (4)
  - Labelled drug-drug interaction medication error [None]
  - Obstructive shock [None]
  - Pericardial haemorrhage [None]
  - Dressler^s syndrome [None]
